FAERS Safety Report 23071278 (Version 1)
Quarter: 2023Q4

REPORT INFORMATION
  Report Type: Report from Study
  Country: US (occurrence: US)
  Receive Date: 20231016
  Receipt Date: 20231016
  Transmission Date: 20240110
  Serious: Yes (Other)
  Sender: FDA-Public Use
  Company Number: US-ABBVIE-5450981

PATIENT
  Sex: Female

DRUGS (1)
  1. SKYRIZI [Suspect]
     Active Substance: RISANKIZUMAB-RZAA
     Indication: Psoriasis
     Dosage: LAST ADMIN DATE- 2023
     Route: 058
     Dates: start: 20230318

REACTIONS (3)
  - Hip surgery [Recovering/Resolving]
  - Intervertebral disc disorder [Recovering/Resolving]
  - Spondylitis [Recovering/Resolving]

NARRATIVE: CASE EVENT DATE: 20230101
